FAERS Safety Report 16868925 (Version 1)
Quarter: 2019Q3

REPORT INFORMATION
  Report Type: Spontaneous
  Country: US (occurrence: US)
  Receive Date: 20190930
  Receipt Date: 20190930
  Transmission Date: 20191005
  Serious: No
  Sender: FDA-Public Use
  Company Number: US-NEXGEN PHARMA, INC.-2075067

PATIENT
  Age: 44 Year
  Sex: Male

DRUGS (1)
  1. CHENODAL [Suspect]
     Active Substance: CHENODIOL
     Indication: FAT TISSUE INCREASED
     Route: 048
     Dates: start: 20161023

REACTIONS (1)
  - Diarrhoea [Unknown]
